FAERS Safety Report 6396674-9 (Version None)
Quarter: 2009Q4

REPORT INFORMATION
  Report Type: 
  Country: None (occurrence: None)
  Receive Date: 20091012
  Receipt Date: 20091002
  Transmission Date: 20100525
  Serious: Yes (Other)
  Sender: FDA-Public Use
  Company Number: FR-AMGEN-QUU361551

PATIENT
  Sex: Female

DRUGS (12)
  1. NEULASTA [Suspect]
     Indication: CHEMOTHERAPY
     Route: 058
     Dates: start: 20090305
  2. GRANOCYTE [Suspect]
     Dates: start: 20090325
  3. FLUOROURACIL [Concomitant]
     Dates: start: 20090211
  4. EPIRUBICIN [Concomitant]
     Dates: start: 20090211
  5. ENDOXAN [Concomitant]
     Dates: start: 20090211
  6. PRIMPERAN [Concomitant]
     Dates: start: 20090305
  7. TAXOTERE [Concomitant]
     Dates: start: 20090201
  8. EMEND [Concomitant]
     Dates: start: 20090305
  9. SOLUPRED [Concomitant]
     Dates: start: 20090305
  10. MOTILIUM [Concomitant]
     Dates: start: 20090305
  11. MEDROL [Concomitant]
     Dates: start: 20090325
  12. UNSPECIFIED MEDICATION [Concomitant]
     Dates: start: 20090325

REACTIONS (2)
  - ANGIOEDEMA [None]
  - URTICARIA [None]
